FAERS Safety Report 20114173 (Version 4)
Quarter: 2022Q1

REPORT INFORMATION
  Report Type: Spontaneous
  Country: PT (occurrence: PT)
  Receive Date: 20211125
  Receipt Date: 20220120
  Transmission Date: 20220423
  Serious: Yes (Life-Threatening, Hospitalization, Other)
  Sender: FDA-Public Use
  Company Number: PT-009507513-2111PRT007363

PATIENT
  Sex: Male

DRUGS (1)
  1. KEYTRUDA [Suspect]
     Active Substance: PEMBROLIZUMAB
     Indication: Malignant neoplasm of thymus
     Dosage: 400 MILLIGRAM, EVERY 6 WEEKS
     Route: 042
     Dates: start: 20211104, end: 20211118

REACTIONS (10)
  - Diplopia [Recovered/Resolved]
  - Transaminases increased [Recovered/Resolved]
  - Respiratory fatigue [Recovered/Resolved]
  - Dependence on respirator [Recovered/Resolved]
  - Muscular dystrophy [Recovered/Resolved]
  - Liver disorder [Recovered/Resolved]
  - Myositis [Recovered/Resolved]
  - Asthenia [Recovered/Resolved]
  - Fatigue [Recovered/Resolved]
  - Off label use [Unknown]

NARRATIVE: CASE EVENT DATE: 20211101
